FAERS Safety Report 19482345 (Version 1)
Quarter: 2021Q3

REPORT INFORMATION
  Report Type: Spontaneous
  Country: US (occurrence: US)
  Receive Date: 20210701
  Receipt Date: 20210701
  Transmission Date: 20211014
  Serious: No
  Sender: FDA-Public Use
  Company Number: US-SA-2021SA214072

PATIENT
  Age: 23 Year
  Sex: Female

DRUGS (1)
  1. DUPIXENT [Suspect]
     Active Substance: DUPILUMAB
     Indication: DERMATITIS ATOPIC
     Dosage: 300 MG,QOW1 SYRINGE
     Route: 058
     Dates: start: 20210624

REACTIONS (5)
  - Condition aggravated [Unknown]
  - Pruritus [Unknown]
  - Skin fissures [Unknown]
  - Sunburn [Unknown]
  - Dry skin [Unknown]

NARRATIVE: CASE EVENT DATE: 202106
